FAERS Safety Report 4882285-0 (Version None)
Quarter: 2006Q1

REPORT INFORMATION
  Report Type: 
  Country: None (occurrence: None)
  Receive Date: 20060117
  Receipt Date: 20060105
  Transmission Date: 20060701
  Serious: Yes (Hospitalization)
  Sender: FDA-Public Use
  Company Number: FR-BRISTOL-MYERS SQUIBB COMPANY-13241260

PATIENT
  Age: 61 Year
  Sex: Male

DRUGS (6)
  1. GLUCOPHAGE [Suspect]
     Route: 048
     Dates: end: 20051117
  2. APROVEL [Suspect]
     Route: 048
     Dates: end: 20051117
  3. DAONIL [Suspect]
     Route: 048
     Dates: end: 20051117
  4. ZYLORIC [Suspect]
     Route: 048
     Dates: end: 20051117
  5. GLUCOR [Suspect]
     Route: 048
     Dates: end: 20051117
  6. CETIRIZINE HCL [Suspect]
     Route: 048
     Dates: start: 20050915, end: 20051117

REACTIONS (5)
  - ALANINE AMINOTRANSFERASE INCREASED [None]
  - ASPARTATE AMINOTRANSFERASE INCREASED [None]
  - BLOOD ALKALINE PHOSPHATASE INCREASED [None]
  - GAMMA-GLUTAMYLTRANSFERASE INCREASED [None]
  - LIVER DISORDER [None]
